FAERS Safety Report 11777709 (Version 2)
Quarter: 2015Q4

REPORT INFORMATION
  Report Type: Report from Study
  Country: JP (occurrence: JP)
  Receive Date: 20151125
  Receipt Date: 20151204
  Transmission Date: 20160304
  Serious: Yes (Death)
  Sender: FDA-Public Use
  Company Number: JP-EISAI MEDICAL RESEARCH-EC-2015-012363

PATIENT
  Age: 85 Year
  Sex: Male

DRUGS (5)
  1. BAYASPIRIN [Concomitant]
     Active Substance: ASPIRIN
  2. ARICEPT [Suspect]
     Active Substance: DONEPEZIL HYDROCHLORIDE
     Indication: DEMENTIA ALZHEIMER^S TYPE
     Route: 048
     Dates: start: 20110523, end: 20150309
  3. AMLODIN [Concomitant]
     Active Substance: AMLODIPINE BESYLATE
  4. RENIVACE [Concomitant]
     Active Substance: ENALAPRIL
  5. HUMALOG [Suspect]
     Active Substance: INSULIN LISPRO
     Indication: PRODUCT USED FOR UNKNOWN INDICATION
     Route: 065
     Dates: end: 20150309

REACTIONS (1)
  - Death [Fatal]

NARRATIVE: CASE EVENT DATE: 20150309
